FAERS Safety Report 4478364-2 (Version None)
Quarter: 2004Q4

REPORT INFORMATION
  Report Type: 
  Country: None (occurrence: None)
  Receive Date: 20041018
  Receipt Date: 20041018
  Transmission Date: 20050328
  Serious: Yes (Hospitalization, Disabling)
  Sender: FDA-Public Use
  Company Number: None

PATIENT
  Age: 39 Year
  Sex: Male
  Weight: 67 kg

DRUGS (1)
  1. TYLENOL PM [Suspect]
     Dosage: IN EVENING

REACTIONS (6)
  - BALANCE DISORDER [None]
  - DIZZINESS [None]
  - FALL [None]
  - HEART RATE IRREGULAR [None]
  - PALPITATIONS [None]
  - TINNITUS [None]
